FAERS Safety Report 19845609 (Version 1)
Quarter: 2021Q3

REPORT INFORMATION
  Report Type: Spontaneous
  Country: CA (occurrence: CA)
  Receive Date: 20210916
  Receipt Date: 20210916
  Transmission Date: 20211014
  Serious: Yes (Life-Threatening)
  Sender: FDA-Public Use
  Company Number: CA-PFIZER INC-202101160952

PATIENT
  Age: 29 Year
  Sex: Female

DRUGS (2)
  1. FENTANYL CITRATE. [Suspect]
     Active Substance: FENTANYL CITRATE
     Indication: DELIVERY
     Dosage: 1 DF, SINGLE
     Route: 008
  2. ROPIVACAINE HYDROCHLORIDE. [Suspect]
     Active Substance: ROPIVACAINE HYDROCHLORIDE
     Indication: DELIVERY
     Dosage: 1 DF, SINGLE
     Route: 008

REACTIONS (2)
  - Anaesthetic complication [Recovered/Resolved]
  - Hypotension [Recovered/Resolved]
